FAERS Safety Report 12451858 (Version 1)
Quarter: 2016Q2

REPORT INFORMATION
  Report Type: Spontaneous
  Country: TT (occurrence: TT)
  Receive Date: 20160609
  Receipt Date: 20160609
  Transmission Date: 20160815
  Serious: Yes (Death, Hospitalization)
  Sender: FDA-Public Use
  Company Number: TT-BAYER-2016-111523

PATIENT
  Age: 68 Year
  Sex: Female

DRUGS (1)
  1. ULTRAVIST [Suspect]
     Active Substance: IOPROMIDE
     Indication: COMPUTERISED TOMOGRAM
     Dosage: 20 ML, ONCE
     Route: 042
     Dates: start: 20160509, end: 20160509

REACTIONS (4)
  - Sneezing [Recovered/Resolved]
  - Vomiting [Recovered/Resolved]
  - Disease progression [Fatal]
  - Abdominal discomfort [Recovered/Resolved]

NARRATIVE: CASE EVENT DATE: 201605
